FAERS Safety Report 4669492-7 (Version None)
Quarter: 2005Q2

REPORT INFORMATION
  Report Type: 
  Country: None (occurrence: None)
  Receive Date: 20050523
  Receipt Date: 20050209
  Transmission Date: 20051028
  Serious: Yes (Hospitalization)
  Sender: FDA-Public Use
  Company Number: SK-ROCHE-395353

PATIENT
  Age: 19 Year
  Sex: Male
  Weight: 61 kg

DRUGS (3)
  1. PEG-INTERFERON ALFA 2A (RO 25-8310) [Suspect]
     Route: 058
     Dates: start: 20040709, end: 20050121
  2. RIBAVIRIN [Suspect]
     Route: 048
     Dates: start: 20040709, end: 20050121
  3. ESSENTIALE [Concomitant]

REACTIONS (2)
  - ACUTE PSYCHOSIS [None]
  - DEPRESSION [None]
